FAERS Safety Report 16975973 (Version 1)
Quarter: 2019Q4

REPORT INFORMATION
  Report Type: Spontaneous
  Country: None (occurrence: DE)
  Receive Date: 20191030
  Receipt Date: 20191030
  Transmission Date: 20200122
  Serious: Yes (Death)
  Sender: FDA-Public Use
  Company Number: DE-METHAPHARM INC.-2076233

PATIENT
  Sex: Female

DRUGS (1)
  1. PROVOCHOLINE [Suspect]
     Active Substance: METHACHOLINE CHLORIDE
     Indication: PULMONARY FUNCTION TEST

REACTIONS (1)
  - Cardiac failure [None]
